FAERS Safety Report 5462478-4 (Version None)
Quarter: 2007Q3

REPORT INFORMATION
  Report Type: 
  Country: None (occurrence: None)
  Receive Date: 20070920
  Receipt Date: 20070917
  Transmission Date: 20080115
  Serious: Yes (Death, Hospitalization)
  Sender: FDA-Public Use
  Company Number: HQWYE188817SEP07

PATIENT

DRUGS (8)
  1. GEMTUZUMAB OZOGAMICIN [Suspect]
     Indication: ACUTE MYELOID LEUKAEMIA
     Dosage: 5.6 MG CUMULATIVE DOSE GIVEN
     Route: 065
     Dates: start: 20070324, end: 20070324
  2. CYTARABINE [Suspect]
     Indication: ACUTE MYELOID LEUKAEMIA
  3. CIPROFLOXACIN [Concomitant]
     Route: 065
     Dates: start: 20070327, end: 20070403
  4. LENOGRASTIM [Concomitant]
  5. IRBESARTAN [Concomitant]
     Indication: HYPERTENSION
     Dosage: 300 MG DAILY
     Route: 065
  6. ALLOPURINOL [Concomitant]
     Indication: PROPHYLAXIS
     Dosage: 300 MG DAILY
     Route: 065
     Dates: start: 20070323, end: 20070423
  7. ETOPOSIDE [Suspect]
     Indication: ACUTE MYELOID LEUKAEMIA
     Dosage: CUMULATIVE DOSE GIVEN 555 MG
     Route: 065
     Dates: start: 20070325, end: 20070327
  8. DAUNORUBICIN [Suspect]
     Indication: ACUTE MYELOID LEUKAEMIA

REACTIONS (1)
  - FUNGAL INFECTION [None]
